FAERS Safety Report 6139579-0 (Version None)
Quarter: 2009Q2

REPORT INFORMATION
  Report Type: 
  Country: None (occurrence: None)
  Receive Date: 20090401
  Receipt Date: 20090310
  Transmission Date: 20091009
  Serious: Yes (Life-Threatening, Hospitalization, Other)
  Sender: FDA-Public Use
  Company Number: DE-CELGENEUS-062-C5013-09010371

PATIENT
  Sex: Male
  Weight: 85 kg

DRUGS (24)
  1. CC-5013 [Suspect]
     Indication: MULTIPLE MYELOMA
     Route: 048
     Dates: start: 20081125
  2. CC-5013 [Suspect]
     Route: 048
     Dates: start: 20081223
  3. DEXAMETHASONE TAB [Suspect]
     Indication: MULTIPLE MYELOMA
     Route: 065
     Dates: start: 20081125
  4. DEXAMETHASONE TAB [Suspect]
     Route: 065
     Dates: start: 20081223
  5. RAMIPRIL [Concomitant]
     Route: 048
  6. ALLOPURINOL [Concomitant]
     Indication: PROPHYLAXIS
     Route: 048
  7. SIMVASTATIN [Concomitant]
     Indication: HYPERCHOLESTEROLAEMIA
     Route: 048
  8. METAMIZOLE [Concomitant]
     Indication: PAIN
     Route: 048
  9. ATENOLOL [Concomitant]
     Route: 048
  10. HYDROMORPHONE HCL [Concomitant]
     Indication: PAIN
     Route: 048
  11. PREGABALIN [Concomitant]
     Indication: PAIN
     Route: 048
  12. AMITRIPTYLINE HCL [Concomitant]
     Indication: PAIN
     Route: 048
  13. MACROGOL [Concomitant]
     Dosage: 3 BAGS
     Route: 048
  14. ZOPICLON [Concomitant]
     Indication: AGITATION
     Route: 048
  15. PILOCARPINE [Concomitant]
     Route: 047
  16. LATANOPROST [Concomitant]
     Route: 047
  17. PAMIDRONATE DISODIUM [Concomitant]
     Indication: MULTIPLE MYELOMA
     Route: 051
     Dates: start: 20081031
  18. CIPROFLOXACIN [Concomitant]
     Indication: DRUG USE FOR UNKNOWN INDICATION
  19. CLINDAMYCIN HCL [Concomitant]
     Indication: DRUG USE FOR UNKNOWN INDICATION
     Route: 048
     Dates: start: 20090115, end: 20090117
  20. CLINDAMYCIN HCL [Concomitant]
     Route: 051
     Dates: start: 20090117, end: 20090207
  21. MIRTAZAPINE [Concomitant]
     Indication: DRUG USE FOR UNKNOWN INDICATION
     Route: 065
  22. ACETYLSALICYLIC ACID [Concomitant]
     Indication: DRUG USE FOR UNKNOWN INDICATION
     Route: 065
  23. BISOPROLOL [Concomitant]
     Indication: DRUG USE FOR UNKNOWN INDICATION
     Route: 065
  24. ENOXAPARIN SODIUM [Concomitant]
     Indication: DRUG USE FOR UNKNOWN INDICATION
     Route: 058

REACTIONS (3)
  - ABSCESS [None]
  - ACUTE MYOCARDIAL INFARCTION [None]
  - BONE PAIN [None]
